FAERS Safety Report 15461482 (Version 1)
Quarter: 2018Q4

REPORT INFORMATION
  Report Type: Spontaneous
  Country: US (occurrence: US)
  Receive Date: 20181003
  Receipt Date: 20181003
  Transmission Date: 20190204
  Serious: Yes (Other)
  Sender: FDA-Public Use
  Company Number: US-PRINSTON PHARMACEUTICAL INC.-2018PRN01401

PATIENT
  Age: 82 Year
  Sex: Female

DRUGS (4)
  1. LOSARTAN POTASSIUM. [Suspect]
     Active Substance: LOSARTAN POTASSIUM
  2. VALSARTAN. [Suspect]
     Active Substance: VALSARTAN
     Dosage: 40 MG
     Route: 065
     Dates: end: 2018
  3. OLMESARTAN MEDOXOMIL (MFG UNKNOWN) [Suspect]
     Active Substance: OLMESARTAN MEDOXOMIL
     Dosage: UNK
     Dates: start: 20180808
  4. VALSARTAN AND HYDROCHLOROTHIAZIDE [Suspect]
     Active Substance: HYDROCHLOROTHIAZIDE\VALSARTAN
     Route: 065

REACTIONS (8)
  - Neoplasm malignant [Unknown]
  - Feeling hot [Unknown]
  - Sweat discolouration [Unknown]
  - Unevaluable event [Unknown]
  - Diarrhoea [Unknown]
  - Nausea [Unknown]
  - Dizziness [Unknown]
  - Hyperhidrosis [Unknown]

NARRATIVE: CASE EVENT DATE: 2018
